FAERS Safety Report 7875596-8 (Version None)
Quarter: 2011Q4

REPORT INFORMATION
  Report Type: 
  Country: None (occurrence: None)
  Receive Date: 20111031
  Receipt Date: 20111017
  Transmission Date: 20120403
  Serious: Yes (Other)
  Sender: FDA-Public Use
  Company Number: US-ELI_LILLY_AND_COMPANY-US200910002160

PATIENT
  Sex: Female

DRUGS (7)
  1. TRICOR [Concomitant]
  2. DIURETICS [Concomitant]
  3. FORTEO [Suspect]
     Indication: OSTEOPOROSIS
     Dosage: 20 UG, QD
     Route: 065
     Dates: start: 20090101, end: 20100101
  4. VITAMIN D [Concomitant]
  5. AVAPRO [Concomitant]
  6. EVISTA [Concomitant]
  7. CALCIUM [Concomitant]

REACTIONS (7)
  - ASTHENIA [None]
  - RENAL DISORDER [None]
  - MUSCULAR WEAKNESS [None]
  - QUALITY OF LIFE DECREASED [None]
  - GAIT DISTURBANCE [None]
  - MUSCLE ATROPHY [None]
  - BLOOD CALCIUM INCREASED [None]
